FAERS Safety Report 5500611-6 (Version None)
Quarter: 2007Q4

REPORT INFORMATION
  Report Type: 
  Country: None (occurrence: None)
  Receive Date: 20071018
  Receipt Date: 20070207
  Transmission Date: 20080405
  Serious: Yes (Other)
  Sender: FDA-Public Use
  Company Number: 2006144758

PATIENT
  Age: 13 Year
  Sex: Female

DRUGS (6)
  1. NEURONTIN [Suspect]
     Indication: ATTENTION DEFICIT/HYPERACTIVITY DISORDER
     Dosage: 200 MG (100 MG, 2 IN 1 D), ORAL
     Route: 048
  2. NEURONTIN [Suspect]
     Indication: BIPOLAR DISORDER
     Dosage: 200 MG (100 MG, 2 IN 1 D), ORAL
     Route: 048
  3. SINGULAIR [Concomitant]
  4. ZOLOFT [Concomitant]
  5. DESMOPRESSIN ACETATE [Concomitant]
  6. ZYRTEC [Concomitant]

REACTIONS (3)
  - AFFECTIVE DISORDER [None]
  - FEELING ABNORMAL [None]
  - SUICIDE ATTEMPT [None]
